FAERS Safety Report 15635296 (Version 1)
Quarter: 2018Q4

REPORT INFORMATION
  Report Type: Spontaneous
  Country: DK (occurrence: DK)
  Receive Date: 20181120
  Receipt Date: 20181120
  Transmission Date: 20190205
  Serious: Yes (Other)
  Sender: FDA-Public Use
  Company Number: DK-ACCORD-092786

PATIENT
  Age: 40 Year
  Sex: Female

DRUGS (3)
  1. BLEOMYCIN [Suspect]
     Active Substance: BLEOMYCIN SULFATE
     Indication: OVARIAN EMBRYONAL CARCINOMA
     Dosage: 3 WEEKLY CYCLES
     Dates: start: 201312
  2. CISPLATIN. [Suspect]
     Active Substance: CISPLATIN
     Indication: OVARIAN EMBRYONAL CARCINOMA
     Dosage: 3 WEEKLY CYCLES
     Dates: start: 201312
  3. ETOPOSIDE. [Suspect]
     Active Substance: ETOPOSIDE
     Indication: OVARIAN EMBRYONAL CARCINOMA
     Dosage: 3 WEEKLY CYCLES
     Dates: start: 201312

REACTIONS (4)
  - Rash [Unknown]
  - Bone marrow toxicity [Unknown]
  - Hypomagnesaemia [Unknown]
  - Skin toxicity [Unknown]
